FAERS Safety Report 19819062 (Version 1)
Quarter: 2021Q3

REPORT INFORMATION
  Report Type: Spontaneous
  Country: MA (occurrence: MA)
  Receive Date: 20210913
  Receipt Date: 20210913
  Transmission Date: 20211014
  Serious: Yes (Hospitalization, Other)
  Sender: FDA-Public Use
  Company Number: MA-SA-2021SA293287

PATIENT
  Age: 27 Year
  Sex: Female

DRUGS (4)
  1. ISONIAZID. [Suspect]
     Active Substance: ISONIAZID
     Indication: TUBERCULOSIS
     Dosage: UNK
     Dates: start: 201810
  2. RIFAMPICIN [Suspect]
     Active Substance: RIFAMPIN
     Indication: TUBERCULOSIS
     Dosage: UNK
     Dates: start: 201810
  3. ETHAMBUTOL [Suspect]
     Active Substance: ETHAMBUTOL HYDROCHLORIDE
     Indication: TUBERCULOSIS
     Dosage: UNK
     Dates: start: 201810
  4. PYRAZINAMIDE. [Suspect]
     Active Substance: PYRAZINAMIDE
     Indication: TUBERCULOSIS
     Dosage: UNK
     Dates: start: 201810

REACTIONS (16)
  - Blister [Recovered/Resolved]
  - Proteinuria [Recovered/Resolved]
  - Bicytopenia [Recovered/Resolved]
  - Anaemia [Recovered/Resolved]
  - Leukopenia [Recovered/Resolved]
  - Oedema [Recovered/Resolved]
  - Rash [Recovered/Resolved]
  - Erythema [Recovered/Resolved]
  - Cheilitis [Recovered/Resolved]
  - Dermatitis [Recovered/Resolved]
  - Acute cutaneous lupus erythematosus [Recovered/Resolved]
  - Nikolsky^s sign [Recovered/Resolved]
  - Reticular erythematous mucinosis [Recovered/Resolved]
  - Condition aggravated [Recovered/Resolved]
  - Epidermal necrosis [Recovered/Resolved]
  - Skin laceration [Recovered/Resolved]

NARRATIVE: CASE EVENT DATE: 2018
